FAERS Safety Report 10462467 (Version 2)
Quarter: 2014Q4

REPORT INFORMATION
  Report Type: Spontaneous
  Country: CA (occurrence: CA)
  Receive Date: 20140918
  Receipt Date: 20141006
  Transmission Date: 20150528
  Serious: Yes (Hospitalization)
  Sender: FDA-Public Use
  Company Number: CA-JNJFOC-20140909343

PATIENT
  Age: 73 Year
  Sex: Female

DRUGS (16)
  1. VITAMIN B12 [Concomitant]
     Active Substance: CYANOCOBALAMIN
     Dosage: 2 DOSES
  2. SALMETEROL [Concomitant]
     Active Substance: SALMETEROL
     Dosage: 2 PUFFS BID
  3. SENNOSIDE [Concomitant]
     Active Substance: SENNOSIDES
     Dosage: 12 MG HS
  4. XARELTO [Suspect]
     Active Substance: RIVAROXABAN
     Indication: DEEP VEIN THROMBOSIS
     Route: 048
     Dates: start: 201402
  5. LACTULOSE. [Concomitant]
     Active Substance: LACTULOSE
  6. VENTOLIN [Concomitant]
     Active Substance: ALBUTEROL SULFATE
     Dosage: 2 PUFFS QID
  7. CIPROFLOXACIN. [Concomitant]
     Active Substance: CIPROFLOXACIN
     Dates: start: 20140510
  8. WARFARIN [Concomitant]
     Active Substance: WARFARIN
  9. DIAZEPAM. [Concomitant]
     Active Substance: DIAZEPAM
     Dosage: 2 DOSES
  10. MIRTAZAPINE. [Concomitant]
     Active Substance: MIRTAZAPINE
     Dosage: 22.5 MG HS
  11. ATROVENT [Concomitant]
     Active Substance: IPRATROPIUM BROMIDE
     Dosage: 2 PUFFS QID
  12. XARELTO [Suspect]
     Active Substance: RIVAROXABAN
     Indication: EMBOLISM VENOUS
     Route: 048
     Dates: start: 201402
  13. HYDROMORPHONE [Concomitant]
     Active Substance: HYDROMORPHONE
     Dosage: H 0.5 MG Q4HR
  14. ASA [Concomitant]
     Active Substance: ASPIRIN
  15. TYLENOL WITH CODEINE [Concomitant]
     Active Substance: ACETAMINOPHEN\CODEINE PHOSPHATE
     Dosage: 2 DOSES
  16. MELATONIN [Concomitant]
     Active Substance: MELATONIN
     Dosage: 3 MG HS

REACTIONS (7)
  - Pulmonary embolism [Unknown]
  - Urinary retention [Recovered/Resolved]
  - Cellulitis [Recovered/Resolved]
  - Deep vein thrombosis [Recovered/Resolved with Sequelae]
  - Hyponatraemia [Recovered/Resolved]
  - Drug ineffective [Unknown]
  - Hypokalaemia [Recovered/Resolved]

NARRATIVE: CASE EVENT DATE: 20140423
